FAERS Safety Report 8437840-8 (Version None)
Quarter: 2012Q2

REPORT INFORMATION
  Report Type: 
  Country: None (occurrence: None)
  Receive Date: 20120614
  Receipt Date: 20120518
  Transmission Date: 20120825
  Serious: No
  Sender: FDA-Public Use
  Company Number: US-AMGEN-USASP2012031574

PATIENT
  Age: 81 Year
  Sex: Female

DRUGS (20)
  1. SPIRONOLACTONE [Concomitant]
  2. SENNA                              /00142201/ [Concomitant]
  3. LINSEED                            /01649402/ [Concomitant]
  4. PROLIA [Suspect]
     Indication: OSTEOPOROSIS POSTMENOPAUSAL
     Dosage: 60 MG, Q6MO
     Route: 058
     Dates: start: 20120511
  5. LASIX [Concomitant]
  6. POTASSIUM ACETATE [Concomitant]
  7. VITAMIN D [Concomitant]
  8. ASPIRIN [Concomitant]
  9. VITAMIN D [Concomitant]
  10. CALCIUM [Concomitant]
  11. IPRATROPIUM BROMIDE [Concomitant]
  12. LANOXIN [Concomitant]
  13. LOPRESSOR [Concomitant]
  14. FIORICET [Concomitant]
  15. VITAMIN B12                        /00056201/ [Concomitant]
  16. SYMBICORT [Concomitant]
  17. DOCUSATE CALCIUM [Concomitant]
  18. THYROID TAB [Concomitant]
  19. CLONAZEPAM [Concomitant]
  20. VITAMIN E                          /00110501/ [Concomitant]

REACTIONS (4)
  - ORAL PAIN [None]
  - STOMATITIS [None]
  - RHINORRHOEA [None]
  - LIP SWELLING [None]
